FAERS Safety Report 5001261-0 (Version None)
Quarter: 2006Q2

REPORT INFORMATION
  Report Type: 
  Country: None (occurrence: None)
  Receive Date: 20060512
  Receipt Date: 20060504
  Transmission Date: 20061013
  Serious: Yes (Hospitalization)
  Sender: FDA-Public Use
  Company Number: BR-ABBOTT-06P-020-0332559-00

PATIENT
  Age: 58 Year
  Sex: Male

DRUGS (5)
  1. DEPAKOTE [Suspect]
     Indication: BIPOLAR DISORDER
     Route: 048
     Dates: start: 20060101
  2. RISPERIDONE [Concomitant]
     Indication: BIPOLAR DISORDER
     Route: 048
  3. BIPERIDEN HYDROCHLORIDE TAB [Concomitant]
     Indication: ANTICHOLINERGIC SYNDROME
     Route: 048
  4. ALPRAZOLAM [Concomitant]
     Indication: BIPOLAR DISORDER
     Route: 048
  5. VITAMIN COMPLEX [Concomitant]
     Indication: VITAMIN SUPPLEMENTATION
     Route: 048

REACTIONS (5)
  - ALCOHOL USE [None]
  - ANAEMIA [None]
  - BLOOD POTASSIUM DECREASED [None]
  - BLOOD SODIUM DECREASED [None]
  - EMPHYSEMA [None]
